FAERS Safety Report 5211959-7 (Version None)
Quarter: 2007Q1

REPORT INFORMATION
  Report Type: 
  Country: None (occurrence: None)
  Receive Date: 20070111
  Receipt Date: 20070103
  Transmission Date: 20070707
  Serious: Yes (Death, Other)
  Sender: FDA-Public Use
  Company Number: 200701AGG00555

PATIENT
  Age: 73 Year
  Sex: Female
  Weight: 52 kg

DRUGS (5)
  1. AGGRASTAT (AGGRASTAT (TIROFIBAN HCL)) [Suspect]
     Dosage: INTRAVENOUS
     Route: 042
     Dates: start: 20061119
  2. ASPIRIN [Concomitant]
  3. CLOPIDOGREL BISULFATE [Concomitant]
  4. HEPARIN [Concomitant]
  5. INSULIN [Concomitant]

REACTIONS (2)
  - CORONARY ARTERY STENOSIS [None]
  - EJECTION FRACTION DECREASED [None]
